FAERS Safety Report 9487070 (Version 1)
Quarter: 2013Q3

REPORT INFORMATION
  Report Type: Spontaneous
  Country: US (occurrence: US)
  Receive Date: 20130829
  Receipt Date: 20130829
  Transmission Date: 20140515
  Serious: No
  Sender: FDA-Public Use
  Company Number: US-BAYER-2013-100321

PATIENT
  Age: 66 Year
  Sex: Male

DRUGS (1)
  1. LEVITRA [Suspect]
     Indication: ERECTILE DYSFUNCTION
     Dosage: 20 MG, 2-3 TIMES A WEEK
     Route: 048
     Dates: start: 201211, end: 20130727

REACTIONS (2)
  - Drug ineffective [None]
  - Nasal congestion [None]
